FAERS Safety Report 5638935-4 (Version None)
Quarter: 2008Q1

REPORT INFORMATION
  Report Type: 
  Country: None (occurrence: None)
  Receive Date: 20080226
  Receipt Date: 20080214
  Transmission Date: 20080703
  Serious: Yes (Hospitalization)
  Sender: FDA-Public Use
  Company Number: US-WYE-H02623908

PATIENT
  Age: 23 Year
  Sex: Male

DRUGS (2)
  1. ROBITUSSIN CF [Suspect]
     Indication: NASOPHARYNGITIS
     Dosage: UNKNOWN
     Route: 048
  2. ROBITUSSIN CF [Suspect]
     Dosage: 2 TEASPOONS X 1
     Route: 048
     Dates: start: 20070101, end: 20070101

REACTIONS (3)
  - CHEST DISCOMFORT [None]
  - DYSPNOEA [None]
  - HYPERSENSITIVITY [None]
